FAERS Safety Report 14738033 (Version 2)
Quarter: 2018Q2

REPORT INFORMATION
  Report Type: Spontaneous
  Country: DE (occurrence: DE)
  Receive Date: 20180409
  Receipt Date: 20180424
  Transmission Date: 20180711
  Serious: Yes (Life-Threatening, Hospitalization, Other)
  Sender: FDA-Public Use
  Company Number: DE-PFIZER INC-2018140200

PATIENT
  Age: 63 Year
  Sex: Female

DRUGS (2)
  1. CARBOPLATIN ACCORD [Suspect]
     Active Substance: CARBOPLATIN
     Dosage: 1, CYCLIC, 6TH ADMINISTRATION (WEEKLY)
     Dates: start: 20171201
  2. PACLITAXEL. [Suspect]
     Active Substance: PACLITAXEL
     Dosage: 1, CYCLIC, 6TH ADMINISTRATION (WEEKLY)
     Dates: start: 20171201

REACTIONS (2)
  - Pancytopenia [Unknown]
  - Urosepsis [Unknown]

NARRATIVE: CASE EVENT DATE: 20171201
